FAERS Safety Report 23690956 (Version 1)
Quarter: 2024Q2

REPORT INFORMATION
  Report Type: Spontaneous
  Country: FR (occurrence: FR)
  Receive Date: 20240401
  Receipt Date: 20240401
  Transmission Date: 20240716
  Serious: Yes (Other)
  Sender: FDA-Public Use
  Company Number: FR-AFSSAPS-RN2024000279

PATIENT
  Age: 18 Year
  Sex: Female
  Weight: 58 kg

DRUGS (3)
  1. ISOTRETINOIN [Suspect]
     Active Substance: ISOTRETINOIN
     Indication: Acne
     Dosage: 10 MILLIGRAM (1 TSP OF CURACNE 10 MG)
     Route: 048
     Dates: start: 20231211, end: 20231225
  2. ISOTRETINOIN [Suspect]
     Active Substance: ISOTRETINOIN
     Dosage: 15 MILLIGRAM
     Route: 048
     Dates: start: 20231226, end: 20240107
  3. ISOTRETINOIN [Suspect]
     Active Substance: ISOTRETINOIN
     Dosage: 20 MILLIGRAM (1 TSP OF CONTRACNE 20 MG)
     Route: 048
     Dates: start: 20240108, end: 20240205

REACTIONS (1)
  - Ecchymosis [Not Recovered/Not Resolved]

NARRATIVE: CASE EVENT DATE: 20231225
